FAERS Safety Report 11845564 (Version 3)
Quarter: 2016Q1

REPORT INFORMATION
  Report Type: Spontaneous
  Country: FR (occurrence: FR)
  Receive Date: 20151217
  Receipt Date: 20160323
  Transmission Date: 20160526
  Serious: Yes (Hospitalization, Other)
  Sender: FDA-Public Use
  Company Number: FR-JNJFOC-20151213219

PATIENT
  Age: 2 Decade
  Sex: Female
  Weight: 34 kg

DRUGS (3)
  1. REMICADE [Suspect]
     Active Substance: INFLIXIMAB
     Indication: CROHN^S DISEASE
     Dosage: 4TH OR 5TH INFUSION
     Route: 042
  2. REMICADE [Suspect]
     Active Substance: INFLIXIMAB
     Indication: CROHN^S DISEASE
     Dosage: 4TH OR 5TH INFUSION
     Route: 042
     Dates: start: 20151001
  3. REMICADE [Suspect]
     Active Substance: INFLIXIMAB
     Indication: CROHN^S DISEASE
     Dosage: 4TH OR 5TH INFUSION
     Route: 042
     Dates: start: 201505

REACTIONS (6)
  - Asthenia [Unknown]
  - Infusion related reaction [Unknown]
  - Erythema [Recovering/Resolving]
  - Suffocation feeling [Recovering/Resolving]
  - Feeling hot [Recovering/Resolving]
  - Dysstasia [Unknown]

NARRATIVE: CASE EVENT DATE: 20151001
